FAERS Safety Report 7221468-1 (Version None)
Quarter: 2011Q1

REPORT INFORMATION
  Report Type: 
  Country: None (occurrence: None)
  Receive Date: 20110112
  Receipt Date: 20110103
  Transmission Date: 20110831
  Serious: Yes (Other)
  Sender: FDA-Public Use
  Company Number: PHHY2011SA00623

PATIENT
  Age: 38 Year
  Sex: Female

DRUGS (2)
  1. LEPONEX [Suspect]
     Dosage: 600 MG, QD
     Route: 048
     Dates: start: 20080101
  2. ANTIPSYCHOTICS [Concomitant]

REACTIONS (5)
  - HYPOTENSION [None]
  - NASOPHARYNGITIS [None]
  - TACHYCARDIA [None]
  - VIRAL INFECTION [None]
  - RENAL FAILURE [None]
